FAERS Safety Report 9509083 (Version 1)
Quarter: 2013Q3

REPORT INFORMATION
  Report Type: Spontaneous
  Country: US (occurrence: US)
  Receive Date: 20130909
  Receipt Date: 20130909
  Transmission Date: 20140515
  Serious: No
  Sender: FDA-Public Use
  Company Number: US-BRISTOL-MYERS SQUIBB COMPANY-19047943

PATIENT
  Sex: Female
  Weight: 95.24 kg

DRUGS (7)
  1. ABILIFY [Suspect]
  2. ZOLOFT [Concomitant]
  3. KLONOPIN [Concomitant]
  4. CLONAZEPAM [Concomitant]
     Indication: TREMOR
  5. LASIX [Concomitant]
  6. ADDERALL [Concomitant]
  7. DICYCLOMINE [Concomitant]

REACTIONS (5)
  - Drug dose omission [Unknown]
  - Mood swings [Unknown]
  - Tremor [Unknown]
  - Anxiety [Unknown]
  - Insomnia [Unknown]
